FAERS Safety Report 4467375-9 (Version None)
Quarter: 2004Q4

REPORT INFORMATION
  Report Type: 
  Country: None (occurrence: None)
  Receive Date: 20041004
  Receipt Date: 20040922
  Transmission Date: 20050328
  Serious: Yes (Other)
  Sender: FDA-Public Use
  Company Number: 2004-04194

PATIENT
  Sex: Female

DRUGS (2)
  1. FIORINAL [Suspect]
     Dosage: 6 CAPSULE, DAILY, ORAL
     Route: 048
  2. FIORINAL [Suspect]
     Dosage: 6 CAPSULE DAILY, ORAL
     Route: 048

REACTIONS (5)
  - ABDOMINAL PAIN [None]
  - AMNESIA [None]
  - CONSTIPATION [None]
  - DRUG ADDICT [None]
  - VISUAL DISTURBANCE [None]
